FAERS Safety Report 4810415-5 (Version None)
Quarter: 2005Q4

REPORT INFORMATION
  Report Type: 
  Country: None (occurrence: None)
  Receive Date: 20051025
  Receipt Date: 20051025
  Transmission Date: 20060501
  Serious: Yes (Life-Threatening, Hospitalization)
  Sender: FDA-Public Use
  Company Number: None

PATIENT
  Sex: Male
  Weight: 58.9676 kg

DRUGS (1)
  1. LEXAPRO [Suspect]
     Indication: ANXIETY
     Dosage: 1 TABLET DAILY
     Dates: start: 20051010, end: 20051017

REACTIONS (3)
  - EMOTIONAL DISORDER [None]
  - INTENTIONAL SELF-INJURY [None]
  - SUICIDE ATTEMPT [None]
